FAERS Safety Report 12308260 (Version 1)
Quarter: 2016Q2

REPORT INFORMATION
  Report Type: Not Available
  Country: FR (occurrence: FR)
  Receive Date: 20160426
  Receipt Date: 20160426
  Transmission Date: 20160815
  Serious: Yes (Hospitalization)
  Sender: FDA-Public Use
  Company Number: FR-MUNDIPHARMA DS AND PHARMACOVIGILANCE-GBR-2016-0035577

PATIENT
  Age: 96 Year
  Sex: Female

DRUGS (11)
  1. BISOPROL [Concomitant]
  2. GINKGO EXTRACT\HEPTAMINOL\TROXERUTIN [Concomitant]
     Active Substance: GINKGO\HEPTAMINOL\TROXERUTIN
  3. DIFFU K [Concomitant]
     Active Substance: POTASSIUM CHLORIDE
  4. DITROPAN [Concomitant]
     Active Substance: OXYBUTYNIN CHLORIDE
  5. PARACETAMOL [Concomitant]
     Active Substance: ACETAMINOPHEN
     Dosage: 500 MG, TID
  6. CALCIPARINE [Concomitant]
     Active Substance: HEPARIN CALCIUM
     Dosage: 0.2 ML, BID
  7. OXYCONTIN [Suspect]
     Active Substance: OXYCODONE HYDROCHLORIDE
     Indication: PAIN
     Dosage: 5 MG, BID
     Route: 048
     Dates: start: 20160403, end: 20160405
  8. KARDEGIC [Concomitant]
     Active Substance: ASPIRIN LYSINE
  9. MODURETIC 5-50 [Concomitant]
     Active Substance: AMILORIDE HYDROCHLORIDE\HYDROCHLOROTHIAZIDE
  10. OXYNORM [Suspect]
     Active Substance: OXYCODONE HYDROCHLORIDE
     Indication: PAIN
     Dosage: 8 MG, DAILY
     Route: 048
     Dates: start: 20160403, end: 20160405
  11. CACIT D3 [Concomitant]
     Active Substance: CALCIUM\CHOLECALCIFEROL

REACTIONS (2)
  - Somnolence [Recovered/Resolved]
  - Psychomotor skills impaired [Recovered/Resolved]

NARRATIVE: CASE EVENT DATE: 20160405
